FAERS Safety Report 5494064-4 (Version None)
Quarter: 2007Q4

REPORT INFORMATION
  Report Type: 
  Country: None (occurrence: None)
  Receive Date: 20071022
  Receipt Date: 20071008
  Transmission Date: 20080405
  Serious: Yes (Death)
  Sender: FDA-Public Use
  Company Number: 2007333182

PATIENT
  Age: 3 Year
  Sex: Male

DRUGS (2)
  1. CHLORPHENIRAMINE/DEXTROMETHORPHAN/PSEUDOEPHEDRINE (PSEUDOEPHEDRINE, DE [Suspect]
  2. BROMPHENIRAMINE [Suspect]

REACTIONS (1)
  - LOSS OF CONSCIOUSNESS [None]
